FAERS Safety Report 5568299-6 (Version None)
Quarter: 2007Q4

REPORT INFORMATION
  Report Type: 
  Country: None (occurrence: None)
  Receive Date: 20071220
  Receipt Date: 20071212
  Transmission Date: 20080405
  Serious: Yes (Other)
  Sender: FDA-Public Use
  Company Number: US-JNJFOC-20071203375

PATIENT
  Age: 60 Year
  Sex: Female

DRUGS (9)
  1. REMICADE [Suspect]
     Indication: RHEUMATOID ARTHRITIS
     Route: 042
  2. WARFARIN SODIUM [Concomitant]
  3. PREDNISONE [Concomitant]
     Indication: RHEUMATOID ARTHRITIS
  4. TRAMADOL HCL [Concomitant]
     Indication: PAIN
  5. SYNTHROID [Concomitant]
     Indication: HYPOTHYROIDISM
  6. MULTIVITAMEN [Concomitant]
  7. CALCIUM SUPPLEMENTS [Concomitant]
  8. PREVICID [Concomitant]
  9. COLACE [Concomitant]

REACTIONS (1)
  - PANCREATIC MASS [None]
